FAERS Safety Report 17646906 (Version 3)
Quarter: 2020Q2

REPORT INFORMATION
  Report Type: Spontaneous
  Country: US (occurrence: US)
  Receive Date: 20200408
  Receipt Date: 20200420
  Transmission Date: 20200713
  Serious: No
  Sender: FDA-Public Use
  Company Number: US-JNJFOC-20200407973

PATIENT
  Sex: Female
  Weight: 70.37 kg

DRUGS (6)
  1. PROVIGIL [Concomitant]
     Active Substance: MODAFINIL
     Route: 048
  2. PRILOSEC [Concomitant]
     Active Substance: OMEPRAZOLE MAGNESIUM
     Route: 048
  3. PROMETHAZINE [Concomitant]
     Active Substance: PROMETHAZINE HYDROCHLORIDE
     Indication: NAUSEA
     Route: 048
  4. DURAGESIC [Suspect]
     Active Substance: FENTANYL
     Indication: PAIN
     Route: 062
  5. KLONOPIN [Concomitant]
     Active Substance: CLONAZEPAM
     Route: 048
  6. OXYCODONE [Concomitant]
     Active Substance: OXYCODONE
     Indication: BREAKTHROUGH PAIN
     Route: 048

REACTIONS (3)
  - Product complaint [Unknown]
  - Malaise [Not Recovered/Not Resolved]
  - Paranoia [Not Recovered/Not Resolved]
